FAERS Safety Report 20462064 (Version 1)
Quarter: 2022Q1

REPORT INFORMATION
  Report Type: Spontaneous
  Country: GB (occurrence: GB)
  Receive Date: 20220211
  Receipt Date: 20220211
  Transmission Date: 20220423
  Serious: Yes (Other)
  Sender: FDA-Public Use
  Company Number: None

PATIENT
  Age: 33 Year
  Sex: Female
  Weight: 73 kg

DRUGS (8)
  1. DOXYCYCLINE [Suspect]
     Active Substance: DOXYCYCLINE
     Indication: Product used for unknown indication
     Dosage: UNK UNK, QD (TWO NOW THEN ONE DAILY)
     Dates: start: 20220121
  2. AMITRIPTYLINE HYDROCHLORIDE [Concomitant]
     Active Substance: AMITRIPTYLINE HYDROCHLORIDE
     Dosage: 3 DOSAGE FORM, QD
     Dates: start: 20210429
  3. CODEINE PHOSPHATE [Concomitant]
     Active Substance: CODEINE PHOSPHATE
     Indication: Pain
     Dosage: UNK UNK, HS UNK (TAKE ONE OR TWO AT NIGHT)
     Dates: start: 20220121
  4. CYCLIZINE [Concomitant]
     Active Substance: CYCLIZINE
     Indication: Illness
     Dosage: 1 DOSAGE FORM, TID (AS REQUIRED)
     Dates: start: 20211111, end: 20211125
  5. PROMETHAZINE HYDROCHLORIDE [Concomitant]
     Active Substance: PROMETHAZINE HYDROCHLORIDE
     Indication: Anxiety
     Dosage: 1 DOSAGE FORM, BID
     Dates: start: 20210514
  6. SERTRALINE [Concomitant]
     Active Substance: SERTRALINE HYDROCHLORIDE
     Dosage: 1 DOSAGE FORM, QD (IN THE MORNING)
     Dates: start: 20210429
  7. QUETIAPINE FUMARATE [Concomitant]
     Active Substance: QUETIAPINE FUMARATE
     Dosage: 1 DOSAGE FORM, QD (AT NIGHT)
     Dates: start: 20210514
  8. SUMATRIPTAN [Concomitant]
     Active Substance: SUMATRIPTAN
     Indication: Migraine
     Dosage: UNK (ONE TO BE TAKEN AT ONSET OF MIGRAINE; DOSE MAY )
     Dates: start: 20211209, end: 20220106

REACTIONS (2)
  - Pain [Recovered/Resolved]
  - Arthralgia [Recovered/Resolved]

NARRATIVE: CASE EVENT DATE: 20220124
